FAERS Safety Report 10686649 (Version 1)
Quarter: 2015Q1

REPORT INFORMATION
  Report Type: Spontaneous
  Country: US (occurrence: US)
  Receive Date: 20150101
  Receipt Date: 20150101
  Transmission Date: 20150720
  Serious: Yes (Hospitalization)
  Sender: FDA-Public Use
  Company Number: US-ASTRAZENECA-2014SE99171

PATIENT
  Age: 55 Year
  Sex: Female
  Weight: 113.4 kg

DRUGS (7)
  1. COMBIVENT [Concomitant]
     Active Substance: ALBUTEROL SULFATE\IPRATROPIUM BROMIDE
     Dosage: EVERY FOUR HOURS
     Route: 055
  2. SYMBICORT [Suspect]
     Active Substance: BUDESONIDE\FORMOTEROL FUMARATE DIHYDRATE
     Indication: ASTHMA
     Dosage: 160/4.5 MCG, ONE PUFF BID
     Route: 055
     Dates: start: 2011, end: 201411
  3. SYMBICORT [Suspect]
     Active Substance: BUDESONIDE\FORMOTEROL FUMARATE DIHYDRATE
     Indication: ASTHMA
     Dosage: 160/4.5 MCG, AS REQUIRED
     Route: 055
  4. VENTOLIN [Concomitant]
     Active Substance: ALBUTEROL SULFATE
     Indication: ASTHMA
     Dosage: TWO TIMES A DAY
     Route: 055
     Dates: start: 201411
  5. OMEPRAZOLE. [Suspect]
     Active Substance: OMEPRAZOLE
     Indication: GASTRIC ULCER
     Route: 048
     Dates: start: 201407
  6. HYDROCHLOROTHIAZIDE. [Concomitant]
     Active Substance: HYDROCHLOROTHIAZIDE
     Dosage: DAILY
     Route: 048
     Dates: start: 20141210
  7. SYMBICORT [Suspect]
     Active Substance: BUDESONIDE\FORMOTEROL FUMARATE DIHYDRATE
     Indication: ASTHMA
     Dosage: 160/4.5 MCG, TWO PUFF BID
     Route: 055
     Dates: start: 201411

REACTIONS (8)
  - Hypoxia [Recovered/Resolved]
  - Off label use [Recovered/Resolved]
  - Weight increased [Not Recovered/Not Resolved]
  - Intentional product misuse [Unknown]
  - Bronchitis [Unknown]
  - Gastric ulcer [Unknown]
  - Dyspnoea [Recovered/Resolved]
  - Cough [Unknown]

NARRATIVE: CASE EVENT DATE: 2011
